FAERS Safety Report 11269616 (Version 2)
Quarter: 2015Q3

REPORT INFORMATION
  Report Type: Spontaneous
  Country: DE (occurrence: DE)
  Receive Date: 20150714
  Receipt Date: 20150806
  Transmission Date: 20151125
  Serious: Yes (Life-Threatening, Hospitalization, Disabling, Other)
  Sender: FDA-Public Use
  Company Number: DE-BAYER-2015-372260

PATIENT
  Age: 69 Year
  Sex: Male

DRUGS (1)
  1. XOFIGO [Suspect]
     Active Substance: RADIUM RA-223 DICHLORIDE
     Indication: PROSTATE CANCER METASTATIC
     Dosage: 1 DF, ONCE
     Dates: start: 20150122, end: 20150122

REACTIONS (5)
  - Hip arthroplasty [None]
  - Bone marrow failure [None]
  - Arthritis infective [None]
  - Leg amputation [None]
  - Urosepsis [None]

NARRATIVE: CASE EVENT DATE: 20150122
